FAERS Safety Report 15264477 (Version 1)
Quarter: 2018Q3

REPORT INFORMATION
  Report Type: Spontaneous
  Country: CA (occurrence: CA)
  Receive Date: 20180810
  Receipt Date: 20180810
  Transmission Date: 20181010
  Serious: Yes (Hospitalization)
  Sender: FDA-Public Use
  Company Number: PHHY2018CA065458

PATIENT
  Age: 17 Year
  Sex: Male

DRUGS (1)
  1. MINOCYCLINE [Suspect]
     Active Substance: MINOCYCLINE\MINOCYCLINE HYDROCHLORIDE
     Indication: ACNE
     Dosage: UNK
     Route: 065

REACTIONS (5)
  - Intestinal infarction [Recovered/Resolved]
  - Abdominal pain [Recovered/Resolved]
  - Vasculitis [Recovered/Resolved]
  - Pyrexia [Recovered/Resolved]
  - Arthritis [Unknown]
